FAERS Safety Report 21752757 (Version 1)
Quarter: 2022Q4

REPORT INFORMATION
  Report Type: Spontaneous
  Country: US (occurrence: None)
  Receive Date: 20221219
  Receipt Date: 20221219
  Transmission Date: 20230113
  Serious: No
  Sender: FDA-Public Use
  Company Number: None

PATIENT
  Age: 47 Year
  Sex: Female

DRUGS (1)
  1. TREPROSTINIL [Suspect]
     Active Substance: TREPROSTINIL
     Indication: Pulmonary hypertension
     Dosage: OTHER FREQUENCY : 24 HOURS;?
     Route: 042
     Dates: start: 20221116

REACTIONS (1)
  - Product supply issue [None]

NARRATIVE: CASE EVENT DATE: 20221216
